FAERS Safety Report 10144684 (Version 1)
Quarter: 2014Q2

REPORT INFORMATION
  Report Type: Spontaneous
  Country: US (occurrence: US)
  Receive Date: 20140430
  Receipt Date: 20140430
  Transmission Date: 20141212
  Serious: No
  Sender: FDA-Public Use
  Company Number: US-SA-2013SA116067

PATIENT
  Age: 33 Year
  Sex: Female

DRUGS (1)
  1. LOVENOX [Suspect]
     Indication: PULMONARY EMBOLISM
     Route: 051
     Dates: start: 201303

REACTIONS (1)
  - Alopecia [Not Recovered/Not Resolved]
